FAERS Safety Report 6683043-7 (Version None)
Quarter: 2010Q2

REPORT INFORMATION
  Report Type: 
  Country: None (occurrence: None)
  Receive Date: 20100415
  Receipt Date: 20100401
  Transmission Date: 20101027
  Serious: Yes (Other)
  Sender: FDA-Public Use
  Company Number: PHHY2010CA19636

PATIENT
  Sex: Female

DRUGS (1)
  1. ACLASTA [Suspect]
     Dosage: 5MG
     Route: 042

REACTIONS (15)
  - ASTHENIA [None]
  - BACK PAIN [None]
  - BONE PAIN [None]
  - DRY SKIN [None]
  - FATIGUE [None]
  - HEADACHE [None]
  - HOT FLUSH [None]
  - JOINT SWELLING [None]
  - LETHARGY [None]
  - LIMB DISCOMFORT [None]
  - MYALGIA [None]
  - PAIN [None]
  - PAIN IN JAW [None]
  - SKIN BURNING SENSATION [None]
  - SYNCOPE [None]
